FAERS Safety Report 13847637 (Version 1)
Quarter: 2017Q3

REPORT INFORMATION
  Report Type: Spontaneous
  Country: US (occurrence: US)
  Receive Date: 20170809
  Receipt Date: 20170809
  Transmission Date: 20171127
  Serious: No
  Sender: FDA-Public Use
  Company Number: US-PURDUE-USA-2017-0136587

PATIENT
  Age: 88 Year
  Sex: Female

DRUGS (3)
  1. BUTRANS [Suspect]
     Active Substance: BUPRENORPHINE
     Indication: PAIN
     Dosage: 10 MCG/HR, WEEKLY
     Route: 062
     Dates: start: 20170130, end: 20170205
  2. BUTRANS [Suspect]
     Active Substance: BUPRENORPHINE
     Dosage: 7.5 MCG/HR, WEEKLY - 2 PATCHES
     Route: 062
     Dates: start: 201701, end: 201701
  3. BUTRANS [Suspect]
     Active Substance: BUPRENORPHINE
     Dosage: 5 MCG/HR, WEEKLY - 2 PATCHES
     Route: 062
     Dates: start: 201701, end: 201701

REACTIONS (6)
  - Drug ineffective [Recovered/Resolved]
  - Pain [Unknown]
  - Nausea [Not Recovered/Not Resolved]
  - Dizziness [Not Recovered/Not Resolved]
  - Extra dose administered [Unknown]
  - Drug withdrawal syndrome [Unknown]

NARRATIVE: CASE EVENT DATE: 201701
